FAERS Safety Report 11018730 (Version 2)
Quarter: 2015Q2

REPORT INFORMATION
  Report Type: Spontaneous
  Country: US (occurrence: US)
  Receive Date: 20150412
  Receipt Date: 20150524
  Transmission Date: 20150821
  Serious: No
  Sender: FDA-Public Use
  Company Number: US-JNJFOC-20130211742

PATIENT
  Sex: Female

DRUGS (2)
  1. DOXIL [Suspect]
     Active Substance: DOXORUBICIN HYDROCHLORIDE
     Indication: OVARIAN CANCER
     Dosage: AROUND 68MG, USING THE 40MG/M2 DOSING
     Route: 042
  2. DOXIL [Suspect]
     Active Substance: DOXORUBICIN HYDROCHLORIDE
     Indication: OVARIAN CANCER
     Route: 042
     Dates: end: 2013

REACTIONS (4)
  - Erythema [Unknown]
  - Adverse event [Unknown]
  - Skin exfoliation [Unknown]
  - Blister [Unknown]

NARRATIVE: CASE EVENT DATE: 2013
